FAERS Safety Report 24912307 (Version 9)
Quarter: 2025Q3

REPORT INFORMATION
  Report Type: Spontaneous
  Country: EU (occurrence: EU)
  Receive Date: 20250131
  Receipt Date: 20250909
  Transmission Date: 20251021
  Serious: Yes (Other)
  Sender: AMERICAN REGENT
  Company Number: EU-AMERICAN REGENT INC-2025000345

PATIENT
  Sex: Male
  Weight: 2.49 kg

DRUGS (32)
  1. FERINJECT [Suspect]
     Active Substance: FERRIC CARBOXYMALTOSE
     Indication: Anaemia
     Route: 064
  2. FERINJECT [Suspect]
     Active Substance: FERRIC CARBOXYMALTOSE
     Route: 064
  3. FERINJECT [Suspect]
     Active Substance: FERRIC CARBOXYMALTOSE
     Route: 064
  4. FERINJECT [Suspect]
     Active Substance: FERRIC CARBOXYMALTOSE
     Route: 064
  5. FERINJECT [Suspect]
     Active Substance: FERRIC CARBOXYMALTOSE
     Route: 064
  6. FERINJECT [Suspect]
     Active Substance: FERRIC CARBOXYMALTOSE
     Route: 064
  7. FERINJECT [Suspect]
     Active Substance: FERRIC CARBOXYMALTOSE
     Route: 064
  8. FERINJECT [Suspect]
     Active Substance: FERRIC CARBOXYMALTOSE
     Route: 064
  9. FERINJECT [Suspect]
     Active Substance: FERRIC CARBOXYMALTOSE
     Route: 064
  10. FERINJECT [Suspect]
     Active Substance: FERRIC CARBOXYMALTOSE
     Route: 064
  11. IMIPENEM [Suspect]
     Active Substance: IMIPENEM
     Indication: Pyrexia
     Route: 064
  12. IMIPENEM [Suspect]
     Active Substance: IMIPENEM
     Route: 064
  13. IMIPENEM [Suspect]
     Active Substance: IMIPENEM
     Route: 064
  14. IMIPENEM [Suspect]
     Active Substance: IMIPENEM
     Route: 064
  15. IMIPENEM [Suspect]
     Active Substance: IMIPENEM
     Route: 065
  16. IMIPENEM [Suspect]
     Active Substance: IMIPENEM
     Route: 065
  17. IMIPENEM [Suspect]
     Active Substance: IMIPENEM
     Route: 065
  18. IMIPENEM [Suspect]
     Active Substance: IMIPENEM
     Route: 065
  19. IMIPENEM [Suspect]
     Active Substance: IMIPENEM
     Route: 065
  20. IMIPENEM [Suspect]
     Active Substance: IMIPENEM
     Route: 065
  21. IMIPENEM [Suspect]
     Active Substance: IMIPENEM
     Route: 065
  22. IMIPENEM [Suspect]
     Active Substance: IMIPENEM
     Route: 065
  23. IMIPENEM [Suspect]
     Active Substance: IMIPENEM
     Route: 065
  24. IMIPENEM [Suspect]
     Active Substance: IMIPENEM
     Route: 065
  25. IMIPENEM [Suspect]
     Active Substance: IMIPENEM
     Route: 065
  26. IMIPENEM [Suspect]
     Active Substance: IMIPENEM
     Route: 065
  27. IMIPENEM [Suspect]
     Active Substance: IMIPENEM
     Route: 065
  28. GENTAMICIN [Suspect]
     Active Substance: GENTAMICIN
     Indication: Product used for unknown indication
     Route: 064
  29. AMPICILLIN SODIUM [Suspect]
     Active Substance: AMPICILLIN SODIUM
     Indication: Product used for unknown indication
     Route: 064
  30. AMPICILLIN SODIUM [Suspect]
     Active Substance: AMPICILLIN SODIUM
     Route: 064
  31. ACETAMINOPHEN [Suspect]
     Active Substance: ACETAMINOPHEN
     Indication: Pyrexia
     Route: 064
  32. ACETAMINOPHEN [Suspect]
     Active Substance: ACETAMINOPHEN
     Indication: Pyrexia
     Route: 064

REACTIONS (9)
  - Neonatal respiratory distress syndrome [Recovered/Resolved]
  - Opisthotonus [Recovered/Resolved]
  - Premature baby [Unknown]
  - Condition aggravated [Recovered/Resolved]
  - Irritability [Recovered/Resolved]
  - Vasculitis [Recovered/Resolved]
  - Atrial septal defect [Recovered/Resolved]
  - Atrial septal defect [Recovered/Resolved]
  - Foetal exposure during pregnancy [Unknown]
